FAERS Safety Report 8718258 (Version 2)
Quarter: 2012Q4

REPORT INFORMATION
  Report Type: 
  Country: US (occurrence: US)
  Receive Date: 20120810
  Receipt Date: 20120910
  Transmission Date: 20130627
  Serious: Yes (Death, Hospitalization)
  Sender: FDA-Public Use
  Company Number: US-ELI_LILLY_AND_COMPANY-US201208002165

PATIENT
  Age: 72 None
  Sex: Male

DRUGS (1)
  1. ADCIRCA [Suspect]
     Indication: PULMONARY HYPERTENSION
     Dosage: 40 mg, qd
     Dates: start: 20120708

REACTIONS (2)
  - Chronic obstructive pulmonary disease [Fatal]
  - Pulmonary oedema [Unknown]
